FAERS Safety Report 13847127 (Version 1)
Quarter: 2017Q3

REPORT INFORMATION
  Report Type: Spontaneous
  Country: CA (occurrence: CA)
  Receive Date: 20170808
  Receipt Date: 20170808
  Transmission Date: 20171127
  Serious: Yes (Death, Hospitalization)
  Sender: FDA-Public Use
  Company Number: CA-ACTELION-A-NJ2017-157733

PATIENT
  Age: 52 Year
  Sex: Female

DRUGS (6)
  1. CARIPUL [Suspect]
     Active Substance: EPOPROSTENOL
     Indication: PULMONARY ARTERIAL HYPERTENSION
     Dosage: 1.5 MG, UNK
     Route: 042
     Dates: start: 20170501
  2. PANTOPRAZOLE [Concomitant]
     Active Substance: PANTOPRAZOLE
  3. SALBUTAMOL [Concomitant]
     Active Substance: ALBUTEROL
  4. LASIX [Concomitant]
     Active Substance: FUROSEMIDE
  5. REVATIO [Concomitant]
     Active Substance: SILDENAFIL CITRATE
  6. POTASSIUM [Concomitant]
     Active Substance: POTASSIUM

REACTIONS (2)
  - Pulmonary arterial hypertension [Fatal]
  - Disease progression [Fatal]
